FAERS Safety Report 10028748 (Version 5)
Quarter: 2014Q2

REPORT INFORMATION
  Report Type: Spontaneous
  Country: US (occurrence: US)
  Receive Date: 20140321
  Receipt Date: 20140626
  Transmission Date: 20141212
  Serious: Yes (Other)
  Sender: FDA-Public Use
  Company Number: US-TEVA-470234USA

PATIENT
  Age: 29 Year
  Sex: Female

DRUGS (1)
  1. PARAGARD 380A [Suspect]
     Indication: CONTRACEPTION
     Route: 015
     Dates: start: 20110407, end: 20140321

REACTIONS (12)
  - Pregnancy with contraceptive device [Unknown]
  - Drug ineffective [Unknown]
  - Blood pressure abnormal [Unknown]
  - Stress [Unknown]
  - Depression [Unknown]
  - Menstruation delayed [Not Recovered/Not Resolved]
  - Pelvic pain [Not Recovered/Not Resolved]
  - Vaginal discharge [Unknown]
  - Vaginal odour [Unknown]
  - Vulvovaginal pruritus [Unknown]
  - Menorrhagia [Unknown]
  - Vaginal haemorrhage [Unknown]
